FAERS Safety Report 17985667 (Version 2)
Quarter: 2020Q3

REPORT INFORMATION
  Report Type: Spontaneous
  Country: JP (occurrence: JP)
  Receive Date: 20200706
  Receipt Date: 20200708
  Transmission Date: 20201103
  Serious: Yes (Death, Other)
  Sender: FDA-Public Use
  Company Number: JP-009507513-2006JPN000001J

PATIENT
  Age: 98 Year
  Sex: Female
  Weight: 39 kg

DRUGS (9)
  1. EXELON [Concomitant]
     Active Substance: RIVASTIGMINE TARTRATE
     Indication: DEMENTIA
     Dosage: 18 MILLIGRAM, QD
     Dates: end: 20200521
  2. BFLUID [Concomitant]
     Active Substance: AMINO ACIDS\DEXTROSE\ELECTROLYTES NOS\VITAMINS
     Indication: SEPSIS
     Dosage: 500 MILLILITER, QD
     Route: 051
     Dates: start: 20200522, end: 20200601
  3. MEROPENEM. [Concomitant]
     Active Substance: MEROPENEM
     Indication: SEPSIS
     Dosage: 0.5 MILLIGRAM, QD
     Route: 051
     Dates: start: 20200522, end: 20200525
  4. MEROPENEM. [Concomitant]
     Active Substance: MEROPENEM
     Indication: DISSEMINATED INTRAVASCULAR COAGULATION
  5. SODIUM CHLORIDE. [Concomitant]
     Active Substance: SODIUM CHLORIDE
     Dosage: 500 MILLILITER/DAY
     Route: 051
     Dates: start: 20200601, end: 20200605
  6. CUBICIN [Suspect]
     Active Substance: DAPTOMYCIN
     Indication: STAPHYLOCOCCAL SEPSIS
     Dosage: 300 MILLIGRAM, QOD
     Route: 041
     Dates: start: 20200526, end: 20200603
  7. FOLIAMIN [Concomitant]
     Active Substance: FOLIC ACID
     Indication: ANAEMIA
     Dosage: 5 MILLIGRAM, BID
     Route: 048
     Dates: start: 20200501, end: 20200521
  8. BFLUID [Concomitant]
     Active Substance: AMINO ACIDS\DEXTROSE\ELECTROLYTES NOS\VITAMINS
     Indication: DISSEMINATED INTRAVASCULAR COAGULATION
  9. OMEPRAZOLE. [Concomitant]
     Active Substance: OMEPRAZOLE
     Dosage: 20 MILLIGRAM, QD
     Route: 051
     Dates: start: 20200522, end: 20200601

REACTIONS (3)
  - Overdose [Unknown]
  - Acute kidney injury [Fatal]
  - Dehydration [Unknown]

NARRATIVE: CASE EVENT DATE: 20200601
